FAERS Safety Report 21917418 (Version 3)
Quarter: 2023Q2

REPORT INFORMATION
  Report Type: Report from Study
  Country: US (occurrence: US)
  Receive Date: 20230126
  Receipt Date: 20230616
  Transmission Date: 20230721
  Serious: No
  Sender: FDA-Public Use
  Company Number: US-ACADIA PHARMACEUTICALS INC.-ACA-2023-PIM-000026

PATIENT
  Sex: Female

DRUGS (3)
  1. NUPLAZID [Suspect]
     Active Substance: PIMAVANSERIN TARTRATE
     Indication: Parkinson^s disease psychosis
     Dosage: 34 MILLIGRAM, QD
     Route: 048
     Dates: start: 20221109
  2. NUPLAZID [Suspect]
     Active Substance: PIMAVANSERIN TARTRATE
     Dosage: 34 MILLIGRAM, QD
     Route: 048
  3. GOCOVRI [Suspect]
     Active Substance: AMANTADINE

REACTIONS (7)
  - Fatigue [Unknown]
  - Therapeutic product effect variable [Not Recovered/Not Resolved]
  - Speech disorder [Not Recovered/Not Resolved]
  - Hypersomnia [Not Recovered/Not Resolved]
  - Dysarthria [Unknown]
  - Aphasia [Unknown]
  - Hallucination [Unknown]
